FAERS Safety Report 8956616 (Version 1)
Quarter: 2012Q4

REPORT INFORMATION
  Report Type: 
  Country: US (occurrence: US)
  Receive Date: 20121210
  Receipt Date: 20121210
  Transmission Date: 20130627
  Serious: Yes (Death, Hospitalization)
  Sender: FDA-Public Use
  Company Number: US-PFIZER INC-2012305678

PATIENT
  Age: 57 Year
  Sex: Female
  Weight: 72 kg

DRUGS (1)
  1. SOMAVERT [Suspect]
     Indication: PITUITARY TUMOUR
     Dosage: UNK, 3x/day

REACTIONS (1)
  - Squamous cell carcinoma [Fatal]
